FAERS Safety Report 6531715-7 (Version None)
Quarter: 2010Q1

REPORT INFORMATION
  Report Type: 
  Country: None (occurrence: None)
  Receive Date: 20100107
  Receipt Date: 20100107
  Transmission Date: 20100710
  Serious: Yes (Hospitalization)
  Sender: FDA-Public Use
  Company Number: None

PATIENT
  Age: 58 Year
  Weight: 102 kg

DRUGS (9)
  1. GEMCITABINE [Suspect]
     Indication: PANCREATIC CARCINOMA
     Dosage: 1000 IV DAY 1,8,15
     Route: 042
     Dates: start: 20091109, end: 20091228
  2. OXALIPLATIN [Suspect]
     Indication: PANCREATIC CARCINOMA
     Dosage: 85MG/M2 IV DAY 1. 15
     Route: 042
     Dates: start: 20091109, end: 20091228
  3. LOTREL [Concomitant]
  4. ZETIA [Concomitant]
  5. PRILOSEC [Concomitant]
  6. LASIX [Concomitant]
  7. LOZOL [Concomitant]
  8. TOPROL-XL [Concomitant]
  9. PRAVASTATIN [Concomitant]

REACTIONS (3)
  - BLOOD CREATINE PHOSPHOKINASE INCREASED [None]
  - OEDEMA PERIPHERAL [None]
  - PAIN IN EXTREMITY [None]
